FAERS Safety Report 9380663 (Version 1)
Quarter: 2013Q3

REPORT INFORMATION
  Report Type: Spontaneous
  Country: CA (occurrence: CA)
  Receive Date: 20130702
  Receipt Date: 20130702
  Transmission Date: 20140515
  Serious: Yes (Other)
  Sender: FDA-Public Use
  Company Number: CA-ELI_LILLY_AND_COMPANY-CA201306007595

PATIENT
  Sex: Male

DRUGS (1)
  1. EFFIENT [Suspect]
     Indication: CARDIAC DISORDER
     Dosage: 10 MG, UNKNOWN
     Route: 048

REACTIONS (2)
  - Neoplasm malignant [Recovering/Resolving]
  - Colon cancer [Recovering/Resolving]
